FAERS Safety Report 5350679-5 (Version None)
Quarter: 2007Q2

REPORT INFORMATION
  Report Type: 
  Country: None (occurrence: None)
  Receive Date: 20070608
  Receipt Date: 20070605
  Transmission Date: 20071010
  Serious: Yes (Other)
  Sender: FDA-Public Use
  Company Number: JP-AVENTIS-200711457JP

PATIENT
  Age: 68 Year

DRUGS (2)
  1. AMARYL [Suspect]
  2. AMARYL [Suspect]

REACTIONS (2)
  - DEAFNESS [None]
  - TINNITUS [None]
